FAERS Safety Report 17809676 (Version 1)
Quarter: 2020Q2

REPORT INFORMATION
  Report Type: Spontaneous
  Country: US (occurrence: US)
  Receive Date: 20200520
  Receipt Date: 20200520
  Transmission Date: 20200714
  Serious: No
  Sender: FDA-Public Use
  Company Number: US-BAUSCH-BL-2020-013778

PATIENT
  Age: 23 Year
  Sex: Female

DRUGS (1)
  1. TRETINOIN CREAM 0.025% [Suspect]
     Active Substance: TRETINOIN
     Indication: ACNE
     Dosage: STARTED EARLY 2019 TO THE SUMMER OF 2019
     Route: 061
     Dates: start: 2019, end: 2019

REACTIONS (3)
  - Condition aggravated [Recovering/Resolving]
  - Drug ineffective [Unknown]
  - Acne [Recovering/Resolving]

NARRATIVE: CASE EVENT DATE: 2019
